FAERS Safety Report 9265569 (Version 4)
Quarter: 2013Q4

REPORT INFORMATION
  Report Type: Spontaneous
  Country: US (occurrence: US)
  Receive Date: 20130501
  Receipt Date: 20131202
  Transmission Date: 20140711
  Serious: Yes (Hospitalization, Other)
  Sender: FDA-Public Use
  Company Number: US-009507513-1304USA016938

PATIENT
  Sex: Female
  Weight: 81.63 kg

DRUGS (3)
  1. NUVARING [Suspect]
     Indication: CONTRACEPTION
     Dosage: UNK
     Route: 067
     Dates: start: 20110401, end: 20110501
  2. NUVARING [Suspect]
     Indication: DYSMENORRHOEA
     Dosage: UNK
     Route: 067
     Dates: start: 20081202, end: 20110525
  3. LISINOPRIL [Suspect]
     Dosage: UNK
     Dates: start: 2008

REACTIONS (18)
  - Traumatic arthropathy [Unknown]
  - Pulmonary embolism [Unknown]
  - Deep vein thrombosis [Unknown]
  - Limb injury [Unknown]
  - Arthralgia [Unknown]
  - Joint surgery [Unknown]
  - Limb injury [Unknown]
  - Iron deficiency [Unknown]
  - Hypersensitivity [Unknown]
  - Upper respiratory tract infection [Unknown]
  - Hypothyroidism [Unknown]
  - Osteoarthritis [Unknown]
  - Iron deficiency anaemia [Unknown]
  - Oedema peripheral [Unknown]
  - Sinusitis [Unknown]
  - Vitamin D deficiency [Unknown]
  - Sleep apnoea syndrome [Unknown]
  - Drug hypersensitivity [Unknown]
